FAERS Safety Report 24069294 (Version 1)
Quarter: 2024Q3

REPORT INFORMATION
  Report Type: Spontaneous
  Country: SG (occurrence: SG)
  Receive Date: 20240710
  Receipt Date: 20240710
  Transmission Date: 20241016
  Serious: No
  Sender: ROCHE
  Company Number: SG-ROCHE-3442641

PATIENT
  Age: 78 Year
  Sex: Female
  Weight: 60.0 kg

DRUGS (2)
  1. PHESGO [Suspect]
     Active Substance: HYALURONIDASE-ZZXF\PERTUZUMAB\TRASTUZUMAB
     Indication: Breast cancer
     Route: 065
  2. CAPECITABINE [Suspect]
     Active Substance: CAPECITABINE
     Indication: Product used for unknown indication
     Route: 048

REACTIONS (5)
  - Dry mouth [Unknown]
  - Dry eye [Unknown]
  - Epistaxis [Unknown]
  - Ulcer [Unknown]
  - Nasal dryness [Unknown]
